FAERS Safety Report 7698791-X (Version None)
Quarter: 2011Q3

REPORT INFORMATION
  Report Type: 
  Country: None (occurrence: None)
  Receive Date: 20110819
  Receipt Date: 20110805
  Transmission Date: 20111222
  Serious: Yes (Other)
  Sender: FDA-Public Use
  Company Number: FR-WATSON-2011-12250

PATIENT
  Sex: Male

DRUGS (4)
  1. RAPAFLO [Suspect]
     Dosage: 4 MG, DAILY
     Route: 048
     Dates: start: 20110627
  2. RAPAFLO [Suspect]
     Indication: BENIGN PROSTATIC HYPERPLASIA
     Dosage: 8 MG DAILY
     Route: 048
     Dates: start: 20110622, end: 20110626
  3. RENITEC                            /00574902/ [Concomitant]
     Indication: PRODUCT USED FOR UNKNOWN INDICATION
     Dosage: 50 DF DAILY
     Route: 048
  4. BISOPROLOL FUMARATE [Concomitant]
     Indication: PRODUCT USED FOR UNKNOWN INDICATION
     Dosage: 50 DF DAILY
     Route: 048

REACTIONS (3)
  - HYPOTENSION [None]
  - VERTIGO [None]
  - FATIGUE [None]
